FAERS Safety Report 9172889 (Version 2)
Quarter: 2013Q2

REPORT INFORMATION
  Report Type: Spontaneous
  Country: US (occurrence: US)
  Receive Date: 20130319
  Receipt Date: 20130528
  Transmission Date: 20140414
  Serious: Yes (Other)
  Sender: FDA-Public Use
  Company Number: US-ASTRAZENECA-2013SE10545

PATIENT
  Age: 60 Year
  Sex: Male
  Weight: 104.3 kg

DRUGS (4)
  1. NEXIUM [Suspect]
     Indication: GASTROOESOPHAGEAL REFLUX DISEASE
     Route: 048
     Dates: start: 201112
  2. NEXIUM [Suspect]
     Indication: OESOPHAGEAL ACHALASIA
     Route: 048
     Dates: start: 201112
  3. NEXIUM [Suspect]
     Indication: GASTROOESOPHAGEAL REFLUX DISEASE
     Route: 048
  4. NEXIUM [Suspect]
     Indication: OESOPHAGEAL ACHALASIA
     Route: 048

REACTIONS (2)
  - Gastric ulcer [Unknown]
  - Off label use [Not Recovered/Not Resolved]
